FAERS Safety Report 7128800-8 (Version None)
Quarter: 2010Q4

REPORT INFORMATION
  Report Type: 
  Country: None (occurrence: None)
  Receive Date: 20101130
  Receipt Date: 20080724
  Transmission Date: 20110411
  Serious: Yes (Death)
  Sender: FDA-Public Use
  Company Number: AU-ROCHE-742528

PATIENT
  Sex: Female

DRUGS (2)
  1. HERCEPTIN [Suspect]
     Route: 065
     Dates: start: 20040101, end: 20080501
  2. LAPATINIB [Suspect]
     Route: 065
     Dates: start: 20040101, end: 20080501

REACTIONS (1)
  - DISEASE PROGRESSION [None]
